FAERS Safety Report 13838422 (Version 1)
Quarter: 2017Q3

REPORT INFORMATION
  Report Type: Spontaneous
  Country: PE (occurrence: PE)
  Receive Date: 20170807
  Receipt Date: 20170807
  Transmission Date: 20171127
  Serious: Yes (Other)
  Sender: FDA-Public Use
  Company Number: PE-UCBSA-2017029957

PATIENT
  Age: 15 Year
  Sex: Male

DRUGS (4)
  1. KEPPRA [Suspect]
     Active Substance: LEVETIRACETAM
     Indication: EPILEPSY
     Dosage: 500 MG, 2X/DAY (BID)
     Route: 048
     Dates: start: 201703, end: 2017
  2. KEPPRA [Suspect]
     Active Substance: LEVETIRACETAM
     Dosage: WAS USING A HALF OF TABLET 1000MG, 2X/DAY (BID)
     Dates: start: 2017
  3. KEPPRA [Suspect]
     Active Substance: LEVETIRACETAM
     Dosage: WAS USING A HALF OF TABLET 500MG, 2X/DAY (BID)
     Dates: start: 2017, end: 2017
  4. KEPPRA [Suspect]
     Active Substance: LEVETIRACETAM
     Dosage: 1000 MG, 2X/DAY (BID)
     Route: 048
     Dates: start: 2017, end: 2017

REACTIONS (2)
  - Wrong technique in product usage process [Unknown]
  - Seizure [Recovered/Resolved]

NARRATIVE: CASE EVENT DATE: 20170611
